FAERS Safety Report 11821355 (Version 5)
Quarter: 2017Q4

REPORT INFORMATION
  Report Type: Spontaneous
  Country: US (occurrence: US)
  Receive Date: 20151210
  Receipt Date: 20171024
  Transmission Date: 20180320
  Serious: Yes (Other)
  Sender: FDA-Public Use
  Company Number: US-JNJFOC-20150619199

PATIENT
  Age: 51 Year
  Sex: Female

DRUGS (6)
  1. VALACYCLOVIR [Concomitant]
     Active Substance: VALACYCLOVIR HYDROCHLORIDE
  2. NORCO [Concomitant]
     Active Substance: ACETAMINOPHEN\HYDROCODONE BITARTRATE
  3. IMBRUVICA [Suspect]
     Active Substance: IBRUTINIB
     Indication: CHRONIC LYMPHOCYTIC LEUKAEMIA
     Route: 048
     Dates: start: 20150205
  4. IMBRUVICA [Suspect]
     Active Substance: IBRUTINIB
     Indication: CHRONIC LYMPHOCYTIC LEUKAEMIA
     Route: 048
     Dates: start: 20170311
  5. ALLOPURINOL. [Concomitant]
     Active Substance: ALLOPURINOL
  6. LEVOFLOXACIN. [Concomitant]
     Active Substance: LEVOFLOXACIN

REACTIONS (14)
  - Injury [Unknown]
  - Blood lactate dehydrogenase increased [Unknown]
  - Skin papilloma [Unknown]
  - Impaired healing [Not Recovered/Not Resolved]
  - White blood cell count increased [Recovering/Resolving]
  - Lymphadenopathy [Unknown]
  - Thrombophlebitis superficial [Not Recovered/Not Resolved]
  - Weight decreased [Unknown]
  - Rash [Unknown]
  - Treatment noncompliance [Recovered/Resolved]
  - Herpes virus infection [Unknown]
  - Pain [Unknown]
  - Skin irritation [Unknown]
  - Laceration [Unknown]

NARRATIVE: CASE EVENT DATE: 2015
